FAERS Safety Report 5620739-X (Version None)
Quarter: 2008Q1

REPORT INFORMATION
  Report Type: 
  Country: None (occurrence: None)
  Receive Date: 20080208
  Receipt Date: 20080129
  Transmission Date: 20080703
  Serious: Yes (Hospitalization)
  Sender: FDA-Public Use
  Company Number: BR-ABBOTT-08P-020-0436074-00

PATIENT
  Sex: Female
  Weight: 64 kg

DRUGS (5)
  1. HUMIRA [Suspect]
     Indication: RHEUMATOID ARTHRITIS
     Route: 058
     Dates: start: 20051001, end: 20071101
  2. HUMIRA [Suspect]
     Route: 058
     Dates: start: 20080105
  3. METHOTREXATE [Concomitant]
     Indication: RHEUMATOID ARTHRITIS
     Route: 048
     Dates: start: 20030101
  4. PREDNISONE TAB [Concomitant]
     Indication: RHEUMATOID ARTHRITIS
     Route: 048
     Dates: start: 19880101
  5. ACETAMINOPHEN, CAFFEINE, CARISOPRODOL AND DICLOFENAC [Concomitant]
     Indication: PAIN
     Route: 048
     Dates: start: 20030101

REACTIONS (2)
  - ARTHRALGIA [None]
  - DISLOCATION OF JOINT PROSTHESIS [None]
